FAERS Safety Report 20708717 (Version 2)
Quarter: 2022Q3

REPORT INFORMATION
  Report Type: Spontaneous
  Country: FR (occurrence: FR)
  Receive Date: 20220414
  Receipt Date: 20220722
  Transmission Date: 20221027
  Serious: Yes (Other)
  Sender: FDA-Public Use
  Company Number: FR-SUN PHARMACEUTICAL INDUSTRIES LTD-2022RR-333270

PATIENT
  Age: 36 Year
  Sex: Female

DRUGS (7)
  1. ASPIRIN [Suspect]
     Active Substance: ASPIRIN
     Indication: Autoimmune hepatitis
     Dosage: 75 MILLIGRAM, DAILY
     Route: 065
  2. PERINDOPRIL [Suspect]
     Active Substance: PERINDOPRIL
     Indication: Blood pressure abnormal
     Dosage: 10 MILLIGRAM, DAILY
     Route: 065
  3. METHYLPREDNISOLONE [Suspect]
     Active Substance: METHYLPREDNISOLONE
     Indication: Autoimmune hepatitis
     Dosage: 4 MILLIGRAM, DAILY, IN THE MORNING
     Route: 065
  4. PROPRANOLOL [Suspect]
     Active Substance: PROPRANOLOL HYDROCHLORIDE
     Indication: Autoimmune hepatitis
     Dosage: 40 MILLIGRAM, BID, IN THE MORNING AND IN THE EVENING
     Route: 065
  5. TACROLIMUS [Suspect]
     Active Substance: TACROLIMUS
     Indication: Autoimmune hepatitis
     Dosage: 1 MILLIGRAM, BID
     Route: 065
  6. AZATHIOPRINE [Suspect]
     Active Substance: AZATHIOPRINE
     Indication: Autoimmune hepatitis
     Dosage: 50 MILLIGRAM, BID, IN THE MORNING AND IN THE EVENING
     Route: 065
  7. oracillin [Concomitant]
     Indication: Product used for unknown indication
     Dosage: 1 MILLION UNITS IN THE MORNING AND IN THE EVENING
     Route: 065

REACTIONS (3)
  - Exposure during pregnancy [Unknown]
  - Renal failure [Unknown]
  - Premature delivery [Unknown]
